FAERS Safety Report 6658123-2 (Version None)
Quarter: 2010Q1

REPORT INFORMATION
  Report Type: 
  Country: None (occurrence: None)
  Receive Date: 20100330
  Receipt Date: 20100322
  Transmission Date: 20100710
  Serious: Yes (Hospitalization)
  Sender: FDA-Public Use
  Company Number: US-BAYER-201016966NA

PATIENT
  Age: 44 Year
  Sex: Female

DRUGS (6)
  1. BETASERON [Suspect]
     Indication: MULTIPLE SCLEROSIS
     Route: 058
     Dates: start: 19970101
  2. BETASERON [Suspect]
     Route: 058
     Dates: start: 20060601, end: 20100126
  3. AVONEX [Concomitant]
  4. NEURONTIN [Concomitant]
  5. PAXIL [Concomitant]
  6. ELAVIL [Concomitant]

REACTIONS (5)
  - JOINT SWELLING [None]
  - MULTIPLE SCLEROSIS RELAPSE [None]
  - MUSCULAR WEAKNESS [None]
  - OEDEMA PERIPHERAL [None]
  - VISUAL IMPAIRMENT [None]
